FAERS Safety Report 6579880-X (Version None)
Quarter: 2010Q1

REPORT INFORMATION
  Report Type: 
  Country: None (occurrence: None)
  Receive Date: 20100212
  Receipt Date: 20100203
  Transmission Date: 20100710
  Serious: Yes (Life-Threatening, Hospitalization, Other)
  Sender: FDA-Public Use
  Company Number: US-JNJCH-2010003515

PATIENT
  Sex: Female

DRUGS (1)
  1. ROLAIDS MULTI-SYMPTOM [Suspect]
     Indication: DRUG USE FOR UNKNOWN INDICATION
     Dosage: TEXT:UNSPECIFIED
     Route: 065

REACTIONS (6)
  - DEHYDRATION [None]
  - DIARRHOEA [None]
  - LIVER DISORDER [None]
  - MALAISE [None]
  - RENAL FAILURE [None]
  - VOMITING [None]
